FAERS Safety Report 10072589 (Version 1)
Quarter: 2014Q2

REPORT INFORMATION
  Report Type: Spontaneous
  Country: CO (occurrence: CO)
  Receive Date: 20140411
  Receipt Date: 20140411
  Transmission Date: 20141212
  Serious: Yes (Other)
  Sender: FDA-Public Use
  Company Number: CO-UCBSA-117993

PATIENT
  Age: 69 Year
  Sex: Female

DRUGS (3)
  1. CIMZIA [Suspect]
     Indication: RHEUMATOID ARTHRITIS
     Route: 058
     Dates: start: 20121114, end: 20140210
  2. VERAPAMIL [Concomitant]
  3. LOSARTAN [Concomitant]

REACTIONS (1)
  - Urinary tract infection [Unknown]
